FAERS Safety Report 9505897 (Version 1)
Quarter: 2013Q1

REPORT INFORMATION
  Report Type: Spontaneous
  Country: US (occurrence: None)
  Receive Date: 20130219
  Receipt Date: 20130219
  Transmission Date: 20140127
  Serious: Yes (Other)
  Sender: FDA-Public Use
  Company Number: 075922

PATIENT
  Age: 55 Year
  Sex: Female

DRUGS (3)
  1. LACOSAMIDE [Suspect]
     Indication: CONVULSION
     Dates: start: 201208
  2. KEPPRA [Concomitant]
  3. TEGRETOL [Concomitant]

REACTIONS (1)
  - Pemphigoid [None]
